FAERS Safety Report 7084553-3 (Version None)
Quarter: 2010Q4

REPORT INFORMATION
  Report Type: 
  Country: None (occurrence: None)
  Receive Date: 20101104
  Receipt Date: 20101025
  Transmission Date: 20110411
  Serious: Yes (Hospitalization)
  Sender: FDA-Public Use
  Company Number: JP-PFIZER INC-2010140667

PATIENT
  Age: 99 Year
  Sex: Female

DRUGS (2)
  1. CELECOX [Suspect]
     Indication: PAIN
     Dosage: 200 MG, 1X/DAY
     Route: 048
     Dates: start: 20101018, end: 20101018
  2. DASEN [Concomitant]
     Dosage: UNK
     Dates: start: 20101018, end: 20101018

REACTIONS (1)
  - LOSS OF CONSCIOUSNESS [None]
